FAERS Safety Report 5304122-2 (Version None)
Quarter: 2007Q2

REPORT INFORMATION
  Report Type: 
  Country: None (occurrence: None)
  Receive Date: 20070423
  Receipt Date: 20070412
  Transmission Date: 20071010
  Serious: Yes (Other)
  Sender: FDA-Public Use
  Company Number: PHEH2007US03853

PATIENT
  Age: 54 Year
  Sex: Female

DRUGS (1)
  1. ZELNORM [Suspect]
     Dosage: UNK, UNK
     Dates: start: 20030101, end: 20070401

REACTIONS (5)
  - ASTHENIA [None]
  - HEART RATE INCREASED [None]
  - MITRAL VALVE PROLAPSE [None]
  - PALPITATIONS [None]
  - TRICUSPID VALVE INCOMPETENCE [None]
